FAERS Safety Report 7546543-3 (Version None)
Quarter: 2011Q2

REPORT INFORMATION
  Report Type: 
  Country: None (occurrence: None)
  Receive Date: 20110614
  Receipt Date: 20110607
  Transmission Date: 20111010
  Serious: Yes (Hospitalization, Other)
  Sender: FDA-Public Use
  Company Number: PL-PFIZER INC-2011099560

PATIENT
  Sex: Male
  Weight: 70 kg

DRUGS (2)
  1. VENLAFAXINE HCL [Suspect]
     Dosage: 150 ER
  2. CARBAMAZEPINE [Concomitant]
     Dosage: 300 UNK, UNK
     Route: 048
     Dates: start: 20050401

REACTIONS (3)
  - COGNITIVE DISORDER [None]
  - SELF ESTEEM DECREASED [None]
  - VISUAL IMPAIRMENT [None]
